FAERS Safety Report 6937091-X (Version None)
Quarter: 2010Q3

REPORT INFORMATION
  Report Type: 
  Country: None (occurrence: None)
  Receive Date: 20100823
  Receipt Date: 20100405
  Transmission Date: 20110219
  Serious: Yes (Other)
  Sender: FDA-Public Use
  Company Number: IN-TYCO HEALTHCARE/MALLINCKRODT-T201000946

PATIENT
  Age: 45 Year
  Sex: Male

DRUGS (2)
  1. SODIUM IODIDE I 131 [Suspect]
     Indication: SCAN THYROID GLAND
     Dosage: 5 MCI, UNK
     Dates: start: 20050801, end: 20050801
  2. SODIUM IODIDE I 131 [Suspect]
     Indication: RADIOACTIVE IODINE THERAPY
     Dosage: 75 MCI, SINGLE
     Dates: start: 20050801, end: 20050801

REACTIONS (4)
  - ACUTE MYELOID LEUKAEMIA [None]
  - GINGIVAL BLEEDING [None]
  - REFUSAL OF TREATMENT BY PATIENT [None]
  - WEIGHT DECREASED [None]
